FAERS Safety Report 9366135 (Version 1)
Quarter: 2013Q2

REPORT INFORMATION
  Report Type: Spontaneous
  Country: GB (occurrence: None)
  Receive Date: 20130619
  Receipt Date: 20130619
  Transmission Date: 20140414
  Serious: Yes (Other)
  Sender: FDA-Public Use
  Company Number: GB-DEXPHARM-20130342

PATIENT
  Age: 63 Year
  Sex: Female

DRUGS (2)
  1. VESICARE [Suspect]
  2. OMEPRAZOLE [Suspect]

REACTIONS (4)
  - Barrett^s oesophagus [None]
  - Hiatus hernia [None]
  - Epigastric discomfort [None]
  - Dyspepsia [None]
